FAERS Safety Report 5054324-8 (Version None)
Quarter: 2006Q3

REPORT INFORMATION
  Report Type: 
  Country: None (occurrence: None)
  Receive Date: 20060718
  Receipt Date: 20060705
  Transmission Date: 20061208
  Serious: Yes (Other)
  Sender: FDA-Public Use
  Company Number: FR-BRISTOL-MYERS SQUIBB COMPANY-13444195

PATIENT
  Age: 58 Year
  Sex: Male

DRUGS (3)
  1. ERBITUX [Suspect]
     Indication: COLORECTAL CANCER
     Route: 042
     Dates: start: 20060620, end: 20060620
  2. CAMPTOSAR [Suspect]
     Indication: COLORECTAL CANCER
     Route: 042
     Dates: start: 20060620, end: 20060620
  3. OXALIPLATIN [Concomitant]
     Indication: COLORECTAL CANCER
     Route: 013

REACTIONS (3)
  - ENTEROCOLITIS HAEMORRHAGIC [None]
  - SKIN TOXICITY [None]
  - WATER POLLUTION [None]
